FAERS Safety Report 5224333-4 (Version None)
Quarter: 2007Q1

REPORT INFORMATION
  Report Type: 
  Country: None (occurrence: None)
  Receive Date: 20070130
  Receipt Date: 20070124
  Transmission Date: 20070707
  Serious: Yes (Hospitalization)
  Sender: FDA-Public Use
  Company Number: US-BOEHRINGER INGELHEIM PHARMACEUTICALS, INC.-2007-BP-00874BP

PATIENT
  Sex: Female

DRUGS (5)
  1. CLONIDINE HCL [Suspect]
     Indication: HYPERTENSION
     Route: 048
  2. LORAZEPAM [Concomitant]
     Route: 048
  3. BISOPROLOL FUMARATE AND HYDROCHLOROTHIAZIDE [Concomitant]
     Route: 048
  4. POTASSIUM ACETATE [Concomitant]
     Route: 048
  5. HYDRO BAP [Concomitant]
     Route: 048

REACTIONS (5)
  - BLOOD PRESSURE DECREASED [None]
  - CHEST DISCOMFORT [None]
  - DISLOCATION OF VERTEBRA [None]
  - HYPERTENSION [None]
  - TEMPOROMANDIBULAR JOINT SYNDROME [None]
